FAERS Safety Report 9647127 (Version 1)
Quarter: 2013Q4

REPORT INFORMATION
  Report Type: Spontaneous
  Country: US (occurrence: US)
  Receive Date: 20131027
  Receipt Date: 20131027
  Transmission Date: 20140711
  Serious: Yes (Other)
  Sender: FDA-Public Use
  Company Number: US-NAPPMUNDI-USA-2013-0105535

PATIENT
  Sex: Male

DRUGS (1)
  1. OXYCONTIN (NDA 22-272) [Suspect]
     Indication: LIMB INJURY
     Dosage: 80 MG, UNK
     Route: 048

REACTIONS (9)
  - Drug dependence [Unknown]
  - Drug withdrawal syndrome [Unknown]
  - Arthralgia [Recovered/Resolved]
  - Anger [Not Recovered/Not Resolved]
  - Insomnia [Recovered/Resolved]
  - Tremor [Recovering/Resolving]
  - Irritability [Not Recovered/Not Resolved]
  - Nervousness [Not Recovered/Not Resolved]
  - Intentional drug misuse [Unknown]
